FAERS Safety Report 10108252 (Version 1)
Quarter: 2014Q2

REPORT INFORMATION
  Report Type: Spontaneous
  Country: FR (occurrence: FR)
  Receive Date: 20140425
  Receipt Date: 20140425
  Transmission Date: 20141212
  Serious: Yes (Hospitalization)
  Sender: FDA-Public Use
  Company Number: FR-ROCHE-1388352

PATIENT
  Age: 67 Year
  Sex: Male

DRUGS (1)
  1. PEGASYS [Suspect]
     Indication: HEPATITIS C
     Route: 058
     Dates: start: 20130513, end: 20140318

REACTIONS (3)
  - Sepsis [Recovering/Resolving]
  - Pancytopenia [Recovering/Resolving]
  - Endocarditis [Recovering/Resolving]
